FAERS Safety Report 20908925 (Version 1)
Quarter: 2022Q2

REPORT INFORMATION
  Report Type: Spontaneous
  Country: US (occurrence: US)
  Receive Date: 20220603
  Receipt Date: 20220603
  Transmission Date: 20220721
  Serious: Yes (Death, Other)
  Sender: FDA-Public Use
  Company Number: US-SA-SAC20220601000122

PATIENT
  Age: 53 Year

DRUGS (1)
  1. ZANTAC [Suspect]
     Active Substance: RANITIDINE HYDROCHLORIDE
     Indication: Dyspepsia
     Dosage: UNK, QD
     Dates: start: 201401, end: 202001

REACTIONS (5)
  - Bladder cancer [Fatal]
  - Renal cancer [Fatal]
  - Hepatic cancer [Fatal]
  - Lung neoplasm malignant [Fatal]
  - Gastric cancer [Fatal]

NARRATIVE: CASE EVENT DATE: 20200101
